FAERS Safety Report 4410882-5 (Version None)
Quarter: 2004Q3

REPORT INFORMATION
  Report Type: 
  Country: None (occurrence: None)
  Receive Date: 20040728
  Receipt Date: 20040728
  Transmission Date: 20050211
  Serious: Yes (Hospitalization)
  Sender: FDA-Public Use
  Company Number: None

PATIENT
  Age: 56 Year
  Sex: Male

DRUGS (4)
  1. ADRIAMYCIN PFS [Suspect]
     Dosage: 25MG/M2, IV DAY 1 AND 15 EVERY 28 DAYS CYCLE 5
     Route: 042
     Dates: start: 20040628
  2. BLEOMYCIN [Suspect]
     Dosage: 10G/M2 IV DAY 1 AND 15 EVERY 28 DAYS CYCLE 5
     Route: 042
     Dates: start: 20040629
  3. VINBLASTINE SULFATE [Suspect]
     Dosage: 6 MG/M2 CYCLE 5
     Dates: start: 20040629
  4. DACARBAZINE [Suspect]
     Dosage: 375 MG/M2 CYCLE 5
     Dates: start: 20040629

REACTIONS (1)
  - PNEUMONIA [None]
